FAERS Safety Report 8987138 (Version 1)
Quarter: 2012Q4

REPORT INFORMATION
  Report Type: 
  Country: US (occurrence: US)
  Receive Date: 20121227
  Receipt Date: 20121227
  Transmission Date: 20130627
  Serious: No
  Sender: FDA-Public Use
  Company Number: US-009507513-1212USA008649

PATIENT
  Sex: Male

DRUGS (4)
  1. VICTRELIS [Suspect]
     Dosage: UNK
     Route: 048
     Dates: start: 20121213, end: 201212
  2. VICTRELIS [Suspect]
     Dosage: UNK
     Route: 048
     Dates: start: 20121217
  3. REBETOL [Suspect]
     Route: 048
  4. PEGINTRON [Suspect]

REACTIONS (1)
  - Rash [Unknown]
